FAERS Safety Report 17214392 (Version 1)
Quarter: 2019Q4

REPORT INFORMATION
  Report Type: Report from Study
  Country: None (occurrence: US)
  Receive Date: 20191230
  Receipt Date: 20191230
  Transmission Date: 20200122
  Serious: No
  Sender: FDA-Public Use
  Company Number: US-ABBVIE-19K-163-3158960-00

PATIENT
  Sex: Male

DRUGS (4)
  1. IMBRUVICA [Suspect]
     Active Substance: IBRUTINIB
     Indication: LYMPHOCYTIC LEUKAEMIA
     Dosage: 280 MG, QD
     Route: 048
     Dates: start: 20190823
  2. PEPCID AC [Concomitant]
     Active Substance: FAMOTIDINE
     Indication: GASTROOESOPHAGEAL REFLUX DISEASE
  3. WELLBUTRIN [Concomitant]
     Active Substance: BUPROPION HYDROCHLORIDE
     Indication: DEPRESSION
  4. IMBRUVICA [Suspect]
     Active Substance: IBRUTINIB
     Dosage: 280 MG, QD
     Route: 048
     Dates: start: 20190824

REACTIONS (13)
  - Fatigue [Not Recovered/Not Resolved]
  - Depression [Unknown]
  - White blood cell count decreased [Not Recovered/Not Resolved]
  - Arthritis [Unknown]
  - Diarrhoea [Recovered/Resolved]
  - Haemoglobin abnormal [Recovered/Resolved]
  - Gastrooesophageal reflux disease [Unknown]
  - Abdominal distension [Unknown]
  - Dyspepsia [Not Recovered/Not Resolved]
  - Platelet count decreased [Recovering/Resolving]
  - Nausea [Unknown]
  - Dizziness [Recovered/Resolved]
  - Abdominal discomfort [Unknown]
